FAERS Safety Report 9246782 (Version 7)
Quarter: 2015Q2

REPORT INFORMATION
  Report Type: Spontaneous
  Country: US (occurrence: US)
  Receive Date: 20130422
  Receipt Date: 20150612
  Transmission Date: 20150821
  Serious: Yes (Other)
  Sender: FDA-Public Use
  Company Number: US-009507513-1304USA008258

PATIENT
  Sex: Male
  Weight: 83.9 kg

DRUGS (1)
  1. PROPECIA [Suspect]
     Active Substance: FINASTERIDE
     Indication: ALOPECIA
     Dosage: 1 MG, QD
     Route: 048
     Dates: start: 20011212, end: 201203

REACTIONS (9)
  - Blood pressure increased [Unknown]
  - Sexual dysfunction [Unknown]
  - Disturbance in sexual arousal [Unknown]
  - Cognitive disorder [Unknown]
  - Breast hyperplasia [Unknown]
  - Mammoplasty [Unknown]
  - Depression [Unknown]
  - Libido decreased [Unknown]
  - Gynaecomastia [Unknown]

NARRATIVE: CASE EVENT DATE: 2004
